FAERS Safety Report 8832692 (Version 4)
Quarter: 2012Q4

REPORT INFORMATION
  Report Type: 
  Country: US (occurrence: US)
  Receive Date: 20121010
  Receipt Date: 20121226
  Transmission Date: 20130627
  Serious: Yes (Hospitalization, Other)
  Sender: FDA-Public Use
  Company Number: US-PFIZER INC-2012247351

PATIENT
  Age: 79 Year
  Sex: Female
  Weight: 65.76 kg

DRUGS (18)
  1. SUTENT [Suspect]
     Indication: METASTATIC RENAL CELL CARCINOMA
     Dosage: 50 mg daily cyclic, 1st cycle
     Dates: start: 20120918, end: 20121015
  2. SUTENT [Suspect]
     Dosage: 37.5 mg daily cyclic, 2nd cycle
     Dates: start: 20121030, end: 20121126
  3. LISINOPRIL [Concomitant]
     Dosage: UNK
  4. LABETALOL [Concomitant]
     Dosage: 300 mg, 3x/day
  5. KLOR-CON [Concomitant]
     Dosage: UNK
  6. AMLODIPINE [Concomitant]
     Dosage: 5 mg, UNK
  7. METOLAZONE [Concomitant]
     Dosage: 5 mg, Every other day
  8. GLIMEPIRIDE [Concomitant]
     Dosage: UNK
  9. LOVASTATIN [Concomitant]
     Dosage: 40 mg, at bed time
  10. OMEPRAZOLE [Concomitant]
     Dosage: 2 Tabs, 2x/day
  11. HYDROCODONE [Concomitant]
     Dosage: UNK,as needed
  12. PROCHLORPERAZINE [Concomitant]
     Dosage: UNK,as needed
  13. MIRALAX [Concomitant]
     Dosage: UNK
  14. ASPIRIN [Concomitant]
     Dosage: 81 mg, UNK
  15. SENOKOT [Concomitant]
     Dosage: UNK
  16. ARANESP [Concomitant]
     Indication: HAEMOGLOBIN DECREASED
     Dosage: UNK
  17. ALISKIREN/HYDROCHLOROTHIAZIDE [Concomitant]
     Dosage: UNK
  18. COMPAZINE [Concomitant]
     Dosage: UNK

REACTIONS (16)
  - Blood glucose decreased [Unknown]
  - Loss of consciousness [Unknown]
  - Pneumonia [Unknown]
  - Nausea [Unknown]
  - Vomiting [Unknown]
  - Blood pressure increased [Unknown]
  - Fatigue [Unknown]
  - Cystitis [Unknown]
  - Eyelid oedema [Unknown]
  - Periorbital oedema [Unknown]
  - Eye injury [Unknown]
  - Diarrhoea [Not Recovered/Not Resolved]
  - Constipation [Unknown]
  - Haemoglobin decreased [Unknown]
  - Weight decreased [Recovering/Resolving]
  - Cough [Unknown]
